FAERS Safety Report 4799739-8 (Version None)
Quarter: 2005Q4

REPORT INFORMATION
  Report Type: 
  Country: None (occurrence: None)
  Receive Date: 20051011
  Receipt Date: 20051011
  Transmission Date: 20060501
  Serious: Yes (Disabling, Other)
  Sender: FDA-Public Use
  Company Number: None

PATIENT
  Age: 43 Year
  Sex: Male
  Weight: 72.5755 kg

DRUGS (1)
  1. EFFEXOR XL 150 MGS [Suspect]
     Indication: DEPRESSION
     Dosage: ORAL PILL DAILY
     Route: 048

REACTIONS (3)
  - CONVULSION [None]
  - DRUG DOSE OMISSION [None]
  - ECONOMIC PROBLEM [None]
